FAERS Safety Report 6998584-2 (Version None)
Quarter: 2010Q3

REPORT INFORMATION
  Report Type: 
  Country: None (occurrence: None)
  Receive Date: 20100920
  Receipt Date: 20100407
  Transmission Date: 20110219
  Serious: Yes (Hospitalization, Other)
  Sender: FDA-Public Use
  Company Number: US-ASTRAZENECA-2009UW21081

PATIENT
  Age: 49 Year
  Sex: Male
  Weight: 103 kg

DRUGS (13)
  1. SEROQUEL [Suspect]
     Indication: DEPRESSION
     Dosage: 100 MG MORNING AND 200 MG NIGHT
     Route: 048
     Dates: start: 19980101
  2. SEROQUEL [Suspect]
     Indication: INSOMNIA
     Dosage: 100 MG MORNING AND 200 MG NIGHT
     Route: 048
     Dates: start: 19980101
  3. SEROQUEL [Suspect]
     Indication: SCHIZOPHRENIA
     Dosage: 100 MG MORNING AND 200 MG NIGHT
     Route: 048
     Dates: start: 19980101
  4. SEROQUEL [Suspect]
     Indication: BIPOLAR DISORDER
     Dosage: 100 MG MORNING AND 200 MG NIGHT
     Route: 048
     Dates: start: 19980101
  5. SEROQUEL [Suspect]
     Indication: ANGER
     Dosage: 100 MG MORNING AND 200 MG NIGHT
     Route: 048
     Dates: start: 19980101
  6. CYMBALTA [Concomitant]
     Indication: DEPRESSION
  7. CYMBALTA [Concomitant]
     Indication: SCHIZOPHRENIA
  8. CYMBALTA [Concomitant]
     Indication: BIPOLAR DISORDER
  9. CYMBALTA [Concomitant]
     Indication: ANGER
  10. LEXAPRO [Concomitant]
     Indication: DEPRESSION
  11. LEXAPRO [Concomitant]
     Indication: SCHIZOPHRENIA
  12. LEXAPRO [Concomitant]
     Indication: BIPOLAR DISORDER
  13. LEXAPRO [Concomitant]
     Indication: ANGER

REACTIONS (5)
  - CHEST PAIN [None]
  - DIABETES MELLITUS [None]
  - GALLBLADDER DISORDER [None]
  - PANCREATITIS [None]
  - SUICIDE ATTEMPT [None]
